FAERS Safety Report 9122610 (Version 1)
Quarter: 2013Q1

REPORT INFORMATION
  Report Type: Spontaneous
  Country: FR (occurrence: FR)
  Receive Date: 20130227
  Receipt Date: 20130227
  Transmission Date: 20140127
  Serious: Yes (Hospitalization)
  Sender: FDA-Public Use
  Company Number: FR-BRISTOL-MYERS SQUIBB COMPANY-17400490

PATIENT
  Age: 71 Year
  Sex: Male
  Weight: 64 kg

DRUGS (2)
  1. APROVEL [Suspect]
     Indication: HYPERTENSION
     Dosage: THERAPY:4-5 YRS
     Route: 048
     Dates: start: 2008, end: 20130124
  2. FLECAINE [Concomitant]
     Indication: ATRIAL FIBRILLATION

REACTIONS (6)
  - Hepatitis cholestatic [Recovering/Resolving]
  - Weight decreased [Recovering/Resolving]
  - Sinus tachycardia [Recovered/Resolved]
  - Type 1 diabetes mellitus [Not Recovered/Not Resolved]
  - Hypercholesterolaemia [Not Recovered/Not Resolved]
  - Orthostatic hypotension [Recovered/Resolved]
